FAERS Safety Report 9384221 (Version 2)
Quarter: 2013Q4

REPORT INFORMATION
  Report Type: Spontaneous
  Country: BR (occurrence: BR)
  Receive Date: 20130705
  Receipt Date: 20131003
  Transmission Date: 20140711
  Serious: Yes (Hospitalization, Other)
  Sender: FDA-Public Use
  Company Number: BR-ASTRAZENECA-2013SE49462

PATIENT
  Age: 895 Month
  Sex: Female
  Weight: 71 kg

DRUGS (11)
  1. SELOZOK [Suspect]
     Indication: HYPERTENSION
     Route: 048
     Dates: start: 2011
  2. ASPIRIN [Suspect]
     Indication: HYPERTENSION
     Route: 065
     Dates: start: 2001
  3. ASPIRIN [Suspect]
     Indication: HYPERTENSION
     Route: 065
     Dates: start: 2001, end: 201203
  4. ROSUCOR [Suspect]
     Route: 048
     Dates: start: 201203
  5. BRILINTA [Suspect]
     Indication: INFARCTION
     Route: 048
     Dates: start: 201203
  6. BRILINTA [Suspect]
     Indication: INFARCTION
     Route: 048
     Dates: start: 201203
  7. NATRILIX SR [Concomitant]
     Indication: HYPERTENSION
     Dates: start: 2001
  8. UNKNOWN [Concomitant]
     Indication: DEPRESSION
     Dates: start: 2001
  9. UNKNOWN [Concomitant]
     Indication: PANIC DISORDER
     Dates: start: 2001
  10. RENITEC [Concomitant]
     Indication: INFARCTION
     Dates: start: 201203
  11. MONOCORDIL [Concomitant]
     Dates: start: 2011

REACTIONS (4)
  - Acute myocardial infarction [Recovered/Resolved]
  - Renal impairment [Recovering/Resolving]
  - Pigmentation disorder [Not Recovered/Not Resolved]
  - Intentional drug misuse [Not Recovered/Not Resolved]
